FAERS Safety Report 11945635 (Version 1)
Quarter: 2016Q1

REPORT INFORMATION
  Report Type: Spontaneous
  Country: US (occurrence: US)
  Receive Date: 20160125
  Receipt Date: 20160125
  Transmission Date: 20160526
  Serious: Yes (Hospitalization)
  Sender: FDA-Public Use
  Company Number: US-ACTELION-A-NJ2016-130231

PATIENT
  Age: 47 Year
  Sex: Male

DRUGS (2)
  1. TRACLEER [Suspect]
     Active Substance: BOSENTAN
     Indication: PULMONARY ARTERIAL HYPERTENSION
     Dosage: 125 MG, BID
     Route: 048
     Dates: start: 20151221
  2. TRACLEER [Suspect]
     Active Substance: BOSENTAN
     Dosage: 62.5 UNK, UNK
     Route: 048
     Dates: start: 20151215

REACTIONS (4)
  - Thromboangiitis obliterans [Not Recovered/Not Resolved]
  - Skin ulcer [Not Recovered/Not Resolved]
  - Necrosis [Not Recovered/Not Resolved]
  - Raynaud^s phenomenon [Not Recovered/Not Resolved]
